FAERS Safety Report 7279200-1 (Version None)
Quarter: 2011Q1

REPORT INFORMATION
  Report Type: 
  Country: None (occurrence: None)
  Receive Date: 20110207
  Receipt Date: 20110125
  Transmission Date: 20110831
  Serious: Yes (Death, Other)
  Sender: FDA-Public Use
  Company Number: ES-WATSON-2011-00824

PATIENT
  Age: 12 Month
  Sex: Male

DRUGS (2)
  1. TACROLIMUS [Suspect]
     Indication: INTESTINAL TRANSPLANT
     Dosage: UNK
  2. SIROLIMUS [Suspect]
     Indication: INTESTINAL TRANSPLANT
     Dosage: UNK

REACTIONS (2)
  - ANAEMIA HAEMOLYTIC AUTOIMMUNE [None]
  - PNEUMOCYSTIS JIROVECI INFECTION [None]
